FAERS Safety Report 17026777 (Version 1)
Quarter: 2019Q4

REPORT INFORMATION
  Report Type: Spontaneous
  Country: US (occurrence: US)
  Receive Date: 20191009
  Receipt Date: 20191009
  Transmission Date: 20200122
  Serious: Yes (Hospitalization)
  Sender: FDA-Public Use
  Company Number: None

PATIENT
  Age: 38 Year
  Sex: Female
  Weight: 125.6 kg

DRUGS (4)
  1. LEUCOVORIN CALCIUM. [Suspect]
     Active Substance: LEUCOVORIN CALCIUM
     Dates: end: 20190722
  2. 5-FLUOROURACIL (5-FU) [Suspect]
     Active Substance: FLUOROURACIL
     Dates: end: 20190724
  3. XELODA [Suspect]
     Active Substance: CAPECITABINE
     Dates: end: 20190919
  4. ELOXATIN [Suspect]
     Active Substance: OXALIPLATIN
     Dates: end: 20190528

REACTIONS (3)
  - Nausea [None]
  - Proctalgia [None]
  - Fatigue [None]

NARRATIVE: CASE EVENT DATE: 20190919
